FAERS Safety Report 5175732-0 (Version None)
Quarter: 2006Q4

REPORT INFORMATION
  Report Type: 
  Country: None (occurrence: None)
  Receive Date: 20061211
  Receipt Date: 20061211
  Transmission Date: 20070319
  Serious: Yes (Other)
  Sender: FDA-Public Use
  Company Number: None

PATIENT
  Age: 13 Year
  Sex: Female
  Weight: 36.2878 kg

DRUGS (1)
  1. SERTRALINE [Suspect]
     Indication: MOOD ALTERED
     Dosage: 1 TABLET BY MOUTH ORALLY
     Route: 048
     Dates: start: 20061004

REACTIONS (3)
  - ABDOMINAL PAIN UPPER [None]
  - PHARMACEUTICAL PRODUCT COMPLAINT [None]
  - POOR QUALITY DRUG ADMINISTERED [None]
